FAERS Safety Report 9556979 (Version 1)
Quarter: 2013Q3

REPORT INFORMATION
  Report Type: Spontaneous
  Country: TW (occurrence: None)
  Receive Date: 20130924
  Receipt Date: 20130924
  Transmission Date: 20140515
  Serious: Yes (Other)
  Sender: FDA-Public Use
  Company Number: SYM-2013-10812

PATIENT
  Age: 57 Year
  Sex: Female

DRUGS (2)
  1. METRONIDAZOLE [Suspect]
     Indication: ILEUS PARALYTIC
  2. METRONIDAZOLE [Suspect]
     Indication: OFF LABEL USE

REACTIONS (2)
  - Encephalopathy [None]
  - Off label use [None]
